FAERS Safety Report 6471305-8 (Version None)
Quarter: 2009Q4

REPORT INFORMATION
  Report Type: 
  Country: None (occurrence: None)
  Receive Date: 20091203
  Receipt Date: 20080421
  Transmission Date: 20100525
  Serious: Yes (Hospitalization, Other)
  Sender: FDA-Public Use
  Company Number: CA-ELI_LILLY_AND_COMPANY-CA200802001754

PATIENT
  Age: 66 Year
  Sex: Male

DRUGS (8)
  1. FORTEO [Suspect]
     Indication: OSTEOPOROSIS
     Dosage: 20 UG, DAILY (1/D)
     Route: 058
     Dates: start: 20070331
  2. CALCIUM                                 /N/A/ [Concomitant]
     Dosage: 1.5 G, DAILY (1/D)
  3. VITAMIN D [Concomitant]
     Dosage: 50000 IU, WEEKLY (1/W)
  4. ADVAIR DISKUS 100/50 [Concomitant]
     Dosage: 500 UG, 2/D
     Route: 055
  5. ADVAIR DISKUS 100/50 [Concomitant]
     Dosage: 250 UG, 2/D
     Route: 055
     Dates: start: 20080212
  6. VENTOLIN [Concomitant]
     Dosage: UNK, AS NEEDED
  7. TESTOSTERONE [Concomitant]
     Indication: OSTEOPOROSIS
     Dosage: 100 MG, OTHER
     Route: 030
  8. ATROVENT [Concomitant]
     Dosage: UNK, EVERY 8 HRS
     Route: 055

REACTIONS (2)
  - BRONCHOPNEUMONIA [None]
  - CHRONIC OBSTRUCTIVE PULMONARY DISEASE [None]
